FAERS Safety Report 8730186 (Version 2)
Quarter: 2012Q4

REPORT INFORMATION
  Report Type: 
  Country: BR (occurrence: BR)
  Receive Date: 20120817
  Receipt Date: 20120913
  Transmission Date: 20130627
  Serious: Yes (Hospitalization, Other)
  Sender: FDA-Public Use
  Company Number: BR-AMGEN-BRASP2012051004

PATIENT
  Sex: Male
  Weight: 68 kg

DRUGS (2)
  1. VECTIBIX [Suspect]
     Indication: COLON CANCER
     Dosage: 408 mg, qd
     Route: 042
     Dates: start: 20120712
  2. CAPOTEN [Concomitant]
     Indication: HYPERTENSION
     Dosage: 25 DF, UNK
     Route: 048

REACTIONS (1)
  - Rash [Recovered/Resolved]
